FAERS Safety Report 6538033-1 (Version None)
Quarter: 2010Q1

REPORT INFORMATION
  Report Type: 
  Country: None (occurrence: None)
  Receive Date: 20100112
  Receipt Date: 20100112
  Transmission Date: 20100710
  Serious: Yes (Other)
  Sender: FDA-Public Use
  Company Number: None

PATIENT
  Age: 47 Year
  Sex: Female
  Weight: 65.318 kg

DRUGS (2)
  1. LEVAQUIN [Suspect]
     Indication: BRONCHITIS
     Dosage: 1 TABLET DAILY
     Dates: start: 20100101, end: 20100103
  2. LEVAQUIN [Suspect]
     Indication: UPPER RESPIRATORY TRACT INFECTION
     Dosage: 1 TABLET DAILY
     Dates: start: 20100101, end: 20100103

REACTIONS (5)
  - ARTHRALGIA [None]
  - GAIT DISTURBANCE [None]
  - IMPAIRED WORK ABILITY [None]
  - JOINT SWELLING [None]
  - TENDONITIS [None]
